FAERS Safety Report 6235881-2 (Version None)
Quarter: 2009Q2

REPORT INFORMATION
  Report Type: 
  Country: None (occurrence: None)
  Receive Date: 20090619
  Receipt Date: 20071221
  Transmission Date: 20091009
  Serious: Yes (Hospitalization, Other)
  Sender: FDA-Public Use
  Company Number: US-ASTRAZENECA-2006UW23775

PATIENT
  Age: 540 Month
  Sex: Female
  Weight: 72.6 kg

DRUGS (19)
  1. SEROQUEL [Suspect]
     Indication: BIPOLAR DISORDER
     Dosage: 100 MG DISPENSED
     Route: 048
     Dates: start: 20020601
  2. SEROQUEL [Suspect]
     Route: 048
     Dates: start: 20020610
  3. SEROQUEL [Suspect]
     Route: 048
     Dates: start: 20020613
  4. SEROQUEL [Suspect]
     Route: 048
     Dates: start: 20041001, end: 20061001
  5. SEROQUEL [Suspect]
     Dosage: 150 MG OR 200 MG TO 300 MG AT NIGHT
     Route: 048
     Dates: start: 20041116
  6. SEROQUEL [Suspect]
     Dosage: 50 MG TO 100 MG AT NIGHT
     Route: 048
     Dates: start: 20050208
  7. SEROQUEL [Suspect]
     Dosage: 25 MG TO 75 MG AT NIGHT
     Route: 048
     Dates: start: 20051005
  8. SEROQUEL [Suspect]
     Dosage: 25 MG IN THE MORNING AND 50 MG TO 75 MG AT NIGHT
     Route: 048
     Dates: start: 20051129
  9. SEROQUEL [Suspect]
     Dosage: 300 MG DISPENSED
     Route: 048
     Dates: start: 20060405
  10. SEROQUEL [Suspect]
     Dosage: 100 MG TO 150 MG AT NIGHT
     Route: 048
     Dates: start: 20061228
  11. WELLBUTRIN SR [Concomitant]
     Dates: start: 20020610
  12. WELLBUTRIN [Concomitant]
     Dosage: 150 MG TO 300 MG EVERYDAY
     Dates: start: 20050208
  13. TRAZODONE HCL [Concomitant]
     Indication: INSOMNIA
     Dosage: 100 MG TO 200 MG AT NIGHT
     Dates: start: 20020219
  14. AMBIEN [Concomitant]
     Indication: INSOMNIA
     Dates: start: 20020610
  15. AMBIEN [Concomitant]
     Dosage: 5 MG DISPENSED
     Dates: start: 20061211
  16. ATIVAN [Concomitant]
     Indication: AGITATION
     Dosage: 1 MG TO 2 MG AS REQUIRED
     Dates: start: 20020612
  17. TRILEPTAL [Concomitant]
     Dosage: 150 MG DISPENSED
     Dates: start: 20060517
  18. TRAMADOL HCL [Concomitant]
     Dosage: 50 MG DISPENSED
     Dates: start: 20060207
  19. LITHIUM CARBONATE [Concomitant]
     Dosage: 300 MG IN THE MORNING AND 600 MG AT BEDTIME
     Dates: start: 20020808

REACTIONS (3)
  - DIABETES MELLITUS [None]
  - PANCREATITIS [None]
  - PANCREATITIS ACUTE [None]
